FAERS Safety Report 16649504 (Version 5)
Quarter: 2019Q4

REPORT INFORMATION
  Report Type: Report from Study
  Country: US (occurrence: US)
  Receive Date: 20190730
  Receipt Date: 20191016
  Transmission Date: 20200122
  Serious: Yes (Other)
  Sender: FDA-Public Use
  Company Number: PHEH2019US031354

PATIENT
  Sex: Male

DRUGS (2)
  1. ENALAPRIL [Concomitant]
     Active Substance: ENALAPRIL
     Indication: PRODUCT USED FOR UNKNOWN INDICATION
     Route: 065
  2. ENTRESTO [Suspect]
     Active Substance: SACUBITRIL\VALSARTAN
     Indication: BLOOD PRESSURE MEASUREMENT
     Dosage: 0.5 DF, BID
     Route: 048
     Dates: start: 20190720

REACTIONS (10)
  - Hypotension [Unknown]
  - Product prescribing error [Unknown]
  - Product use in unapproved indication [Unknown]
  - Back disorder [Unknown]
  - Memory impairment [Unknown]
  - Blood potassium increased [Unknown]
  - Diabetes mellitus [Unknown]
  - Blood pressure fluctuation [Recovering/Resolving]
  - Drug ineffective [Unknown]
  - Wrong technique in product usage process [Unknown]
